FAERS Safety Report 8449916-X (Version None)
Quarter: 2012Q2

REPORT INFORMATION
  Report Type: 
  Country: None (occurrence: None)
  Receive Date: 20120620
  Receipt Date: 20120614
  Transmission Date: 20120825
  Serious: Yes (Other)
  Sender: FDA-Public Use
  Company Number: PHHY2012FR051441

PATIENT
  Age: 63 Year
  Sex: Female

DRUGS (1)
  1. FEMARA [Suspect]
     Indication: BREAST CANCER
     Dosage: UNK UKN, UNK

REACTIONS (9)
  - RENIN INCREASED [None]
  - BLOOD CORTICOTROPHIN INCREASED [None]
  - PIGMENTATION DISORDER [None]
  - ASTHENIA [None]
  - ADRENAL INSUFFICIENCY [None]
  - BLOOD CORTISOL DECREASED [None]
  - WEIGHT DECREASED [None]
  - BLOOD ALDOSTERONE DECREASED [None]
  - METASTASES TO BONE [None]
